FAERS Safety Report 19295920 (Version 1)
Quarter: 2021Q2

REPORT INFORMATION
  Report Type: Spontaneous
  Country: US (occurrence: US)
  Receive Date: 20210524
  Receipt Date: 20210524
  Transmission Date: 20210717
  Serious: Yes (Disabling, Other)
  Sender: FDA-Public Use
  Company Number: US-PURDUE-USA-2020-0164237

PATIENT
  Sex: Male

DRUGS (1)
  1. OXYCONTIN [Suspect]
     Active Substance: OXYCODONE HYDROCHLORIDE
     Indication: PAIN MANAGEMENT
     Dosage: 80 MG, UNK
     Route: 048

REACTIONS (13)
  - Withdrawal syndrome [Unknown]
  - Vomiting [Unknown]
  - Drug dependence [Unknown]
  - Insomnia [Unknown]
  - Diarrhoea [Unknown]
  - Emotional distress [Unknown]
  - Judgement impaired [Unknown]
  - Injury [Unknown]
  - Somnolence [Unknown]
  - Dizziness [Unknown]
  - Pain [Unknown]
  - Unevaluable event [Unknown]
  - Hypertension [Unknown]
